FAERS Safety Report 16265040 (Version 3)
Quarter: 2019Q2

REPORT INFORMATION
  Report Type: Report from Study
  Country: JP (occurrence: JP)
  Receive Date: 20190502
  Receipt Date: 20190523
  Transmission Date: 20190711
  Serious: Yes (Hospitalization, Other)
  Sender: FDA-Public Use
  Company Number: JP-TAKEDA-2019TJP009708

PATIENT
  Age: 67 Year
  Sex: Female
  Weight: 58.5 kg

DRUGS (10)
  1. BRIGATINIB [Suspect]
     Active Substance: BRIGATINIB
     Indication: LUNG ADENOCARCINOMA
     Dosage: 90 MILLIGRAM, QD
     Route: 048
     Dates: start: 20181221, end: 20181227
  2. AMBROXOL HYDROCHLORIDE [Concomitant]
     Active Substance: AMBROXOL HYDROCHLORIDE
     Indication: LUNG ADENOCARCINOMA
     Dosage: 45 MILLIGRAM, QD
     Route: 048
     Dates: start: 20190313
  3. TELMISARTAN. [Concomitant]
     Active Substance: TELMISARTAN
     Indication: HYPERTENSION
     Dosage: 40 MILLIGRAM, QD
     Route: 048
  4. DENOTAS [Concomitant]
     Active Substance: CALCIUM CARBONATE\CHOLECALCIFEROL\MAGNESIUM CARBONATE
     Indication: PROPHYLAXIS
     Dosage: 1 DOSAGE FORM, QD
     Route: 048
  5. AMLODIPINE                         /00972402/ [Concomitant]
     Active Substance: AMLODIPINE BESYLATE
     Indication: HYPERTENSION
     Dosage: 2.5 MILLIGRAM, QD
     Route: 048
  6. TRAZENTA [Concomitant]
     Active Substance: LINAGLIPTIN
     Indication: DIABETES MELLITUS
     Dosage: 5 MILLIGRAM, QD
     Route: 048
  7. RANMARK [Suspect]
     Active Substance: DENOSUMAB
     Indication: LUNG ADENOCARCINOMA
     Dosage: 120 MILLIGRAM, Q4WEEKS
     Route: 058
     Dates: start: 20150223, end: 20190410
  8. ATOZET [Concomitant]
     Active Substance: ATORVASTATIN CALCIUM\EZETIMIBE
     Indication: DYSLIPIDAEMIA
     Dosage: 1 DOSAGE FORM, QD
     Route: 048
  9. PERSANTIN [Concomitant]
     Active Substance: DIPYRIDAMOLE
     Indication: ANGINA PECTORIS
     Dosage: 25 MILLIGRAM, TID
     Route: 048
  10. BRIGATINIB [Suspect]
     Active Substance: BRIGATINIB
     Dosage: 180 MILLIGRAM, QD
     Route: 048
     Dates: start: 20181228, end: 20190426

REACTIONS (1)
  - Osteomyelitis [Not Recovered/Not Resolved]

NARRATIVE: CASE EVENT DATE: 20190415
